FAERS Safety Report 6319998-X (Version None)
Quarter: 2009Q3

REPORT INFORMATION
  Report Type: 
  Country: None (occurrence: None)
  Receive Date: 20090822
  Receipt Date: 20081023
  Transmission Date: 20100115
  Serious: No
  Sender: FDA-Public Use
  Company Number: US-ABBOTT-08P-163-0483452-00

PATIENT
  Sex: Male

DRUGS (5)
  1. NIASPAN [Suspect]
     Indication: BLOOD CHOLESTEROL
     Route: 048
     Dates: start: 20081023, end: 20081023
  2. NIASPAN [Suspect]
     Route: 048
     Dates: start: 20081024
  3. OMEPRAZOLE [Concomitant]
     Indication: DYSPEPSIA
     Route: 048
  4. FISH OIL [Concomitant]
     Indication: DRUG USE FOR UNKNOWN INDICATION
     Route: 048
  5. UNKNOWN SINUS PILLS [Concomitant]
     Indication: SINUS DISORDER
     Route: 048

REACTIONS (2)
  - ACCIDENTAL OVERDOSE [None]
  - FLUSHING [None]
